FAERS Safety Report 5012809-4 (Version None)
Quarter: 2006Q2

REPORT INFORMATION
  Report Type: 
  Country: None (occurrence: None)
  Receive Date: 20060530
  Receipt Date: 20060320
  Transmission Date: 20061013
  Serious: Yes (Death)
  Sender: FDA-Public Use
  Company Number: US-BRISTOL-MYERS SQUIBB COMPANY-13322391

PATIENT
  Age: 44 Year
  Sex: Male

DRUGS (6)
  1. ERBITUX [Suspect]
     Indication: NEOPLASM MALIGNANT
     Dosage: ADMINISTERED ON 22-JUN-05.
     Route: 042
     Dates: start: 20050622, end: 20050622
  2. BENADRYL [Concomitant]
     Indication: PREMEDICATION
     Dates: start: 20050101, end: 20050101
  3. VICODIN [Concomitant]
  4. NEURONTIN [Concomitant]
  5. AMBIEN [Concomitant]
  6. DURAGESIC-100 [Concomitant]

REACTIONS (1)
  - MALIGNANT NEOPLASM PROGRESSION [None]
